FAERS Safety Report 23110434 (Version 2)
Quarter: 2023Q4

REPORT INFORMATION
  Report Type: Spontaneous
  Country: TR (occurrence: TR)
  Receive Date: 20231026
  Receipt Date: 20231106
  Transmission Date: 20240109
  Serious: Yes (Hospitalization, Other)
  Sender: FDA-Public Use
  Company Number: TR-TEVA-2023-TR-2937973

PATIENT
  Age: 14 Year
  Sex: Female

DRUGS (1)
  1. RISPERIDONE [Suspect]
     Active Substance: RISPERIDONE
     Indication: Behaviour disorder
     Dosage: 1 MILLIGRAM DAILY;
     Route: 065

REACTIONS (4)
  - Hyperprolactinaemia [Recovering/Resolving]
  - Anisomastia [Recovering/Resolving]
  - General physical condition abnormal [Recovering/Resolving]
  - Drug ineffective [Unknown]
